FAERS Safety Report 14149110 (Version 1)
Quarter: 2017Q4

REPORT INFORMATION
  Report Type: Spontaneous
  Country: CN (occurrence: CN)
  Receive Date: 20171101
  Receipt Date: 20171101
  Transmission Date: 20180321
  Serious: Yes (Other)
  Sender: FDA-Public Use
  Company Number: CN-PFIZER INC-2017470041

PATIENT
  Age: 49 Year
  Sex: Female
  Weight: 52.5 kg

DRUGS (2)
  1. SOLU-MEDROL [Suspect]
     Active Substance: METHYLPREDNISOLONE SODIUM SUCCINATE
     Indication: INFECTION
     Dosage: 40 MG, 1X/DAY
     Route: 041
     Dates: start: 20170819, end: 20170823
  2. SODIUM CHLORIDE. [Concomitant]
     Active Substance: SODIUM CHLORIDE
     Indication: DRUG THERAPY
     Dosage: 250 ML, 1X/DAY
     Route: 041
     Dates: start: 20170819, end: 20170823

REACTIONS (2)
  - Pyrexia [Recovered/Resolved]
  - Chills [Recovered/Resolved]

NARRATIVE: CASE EVENT DATE: 20170823
